FAERS Safety Report 8562885-7 (Version None)
Quarter: 2012Q3

REPORT INFORMATION
  Report Type: 
  Country: None (occurrence: None)
  Receive Date: 20120802
  Receipt Date: 20120719
  Transmission Date: 20120928
  Serious: No
  Sender: FDA-Public Use
  Company Number: US-AMGEN-USASP2012045058

PATIENT
  Age: 73 Year
  Sex: Female

DRUGS (1)
  1. ENBREL [Suspect]
     Indication: RHEUMATOID ARTHRITIS
     Dosage: 50 MG, QWK
     Dates: start: 20110625

REACTIONS (7)
  - INCREASED TENDENCY TO BRUISE [None]
  - RED BLOOD CELL COUNT DECREASED [None]
  - INCORRECT PRODUCT STORAGE [None]
  - HEADACHE [None]
  - SCAB [None]
  - ACCIDENT AT WORK [None]
  - THERAPEUTIC RESPONSE DECREASED [None]
